FAERS Safety Report 13949950 (Version 1)
Quarter: 2017Q3

REPORT INFORMATION
  Report Type: Spontaneous
  Country: US (occurrence: US)
  Receive Date: 20170908
  Receipt Date: 20170908
  Transmission Date: 20171128
  Serious: Yes (Other)
  Sender: FDA-Public Use
  Company Number: US-NATCO PHARMA-2017NAT00075

PATIENT
  Age: 70 Year
  Sex: Female

DRUGS (5)
  1. ATORVASTATIN [Concomitant]
     Active Substance: ATORVASTATIN
     Dosage: 10 MG, 1X/DAY AT BEDTIME
     Route: 048
  2. COLESTIPOL [Concomitant]
     Active Substance: COLESTIPOL
     Dosage: 1 PACKET MIXED WITH WATER, 1X/DAY AT BEDTIME
     Route: 048
  3. LATANOPROST. [Concomitant]
     Active Substance: LATANOPROST
     Dosage: 1 DROP, 1X/DAY IN BOTH EYES AT BEDTIME
     Route: 031
  4. LETROZOLE. [Suspect]
     Active Substance: LETROZOLE
     Indication: BREAST CANCER
     Dosage: 2.5 MG, 1X/DAY AT BEDTIME
     Route: 048
     Dates: start: 2016, end: 2017
  5. VITAMINS NOS [Concomitant]
     Active Substance: VITAMINS
     Dosage: 1 TABLETS, 1X/DAY
     Route: 048

REACTIONS (4)
  - Vision blurred [Recovering/Resolving]
  - Cataract [Recovering/Resolving]
  - Macular degeneration [Recovering/Resolving]
  - Glaucoma [Recovering/Resolving]

NARRATIVE: CASE EVENT DATE: 2017
